FAERS Safety Report 8484924-4 (Version None)
Quarter: 2012Q2

REPORT INFORMATION
  Report Type: 
  Country: None (occurrence: None)
  Receive Date: 20120625
  Receipt Date: 20120611
  Transmission Date: 20120825
  Serious: Yes (Other)
  Sender: FDA-Public Use
  Company Number: 2012P1012633

PATIENT
  Age: 42 Year
  Sex: Male
  Weight: 105.2345 kg

DRUGS (15)
  1. NUCYNTA [Suspect]
     Indication: PAIN
  2. OMEPRAZOLE [Concomitant]
  3. CYCLOBENZAPRINE [Concomitant]
  4. METFORMIN HCL [Concomitant]
  5. DIOVAN [Concomitant]
  6. ACTOS [Concomitant]
  7. SERTRALINE HYDROCHLORIDE [Concomitant]
  8. LORTAB [Concomitant]
  9. LEVEMIR [Concomitant]
  10. SYNTHROID [Concomitant]
  11. SIMVASTATIN [Concomitant]
  12. FENTANYL-75 [Suspect]
     Indication: NEUROPATHY PERIPHERAL
     Dosage: 1 PATCH;Q48H;TDER
     Route: 062
     Dates: start: 20120319
  13. NOVOLOG [Concomitant]
  14. FENTANYL-50 [Suspect]
     Dosage: 1 PATCH;Q48H;TDER
     Route: 062
     Dates: start: 20120220, end: 20120319
  15. CYMBALTA [Concomitant]

REACTIONS (19)
  - DRUG INEFFECTIVE [None]
  - NAUSEA [None]
  - PAIN [None]
  - MUSCLE SPASMS [None]
  - FATIGUE [None]
  - HYPERHIDROSIS [None]
  - VOMITING [None]
  - WITHDRAWAL SYNDROME [None]
  - ABDOMINAL PAIN [None]
  - HYPERGLYCAEMIA [None]
  - BACK PAIN [None]
  - TREMOR [None]
  - FEELING JITTERY [None]
  - PRODUCT QUALITY ISSUE [None]
  - PAIN IN EXTREMITY [None]
  - SYNCOPE [None]
  - DRUG SCREEN POSITIVE [None]
  - ARTHRALGIA [None]
  - WEIGHT DECREASED [None]
